FAERS Safety Report 12092587 (Version 1)
Quarter: 2016Q1

REPORT INFORMATION
  Report Type: Spontaneous
  Country: US (occurrence: US)
  Receive Date: 20160219
  Receipt Date: 20160219
  Transmission Date: 20160526
  Serious: No
  Sender: FDA-Public Use
  Company Number: US-009507513-1602USA007314

PATIENT
  Age: 17 Year
  Sex: Female
  Weight: 79.37 kg

DRUGS (1)
  1. NEXPLANON [Suspect]
     Active Substance: ETONOGESTREL
     Indication: MENSTRUAL CYCLE MANAGEMENT
     Dosage: EVERY 3 YEARS
     Route: 059
     Dates: start: 20150806

REACTIONS (3)
  - Amenorrhoea [Unknown]
  - Product use issue [Unknown]
  - Menorrhagia [Unknown]

NARRATIVE: CASE EVENT DATE: 2015
